FAERS Safety Report 5053113-8 (Version None)
Quarter: 2006Q3

REPORT INFORMATION
  Report Type: 
  Country: None (occurrence: None)
  Receive Date: 20060712
  Receipt Date: 20060623
  Transmission Date: 20061208
  Serious: Yes (Hospitalization)
  Sender: FDA-Public Use
  Company Number: US200606005382

PATIENT
  Age: 97 Year
  Sex: Female

DRUGS (3)
  1. FORTEO [Suspect]
     Indication: OSTEOPOROSIS
  2. FORTEO [Suspect]
  3. FORTEO [Concomitant]

REACTIONS (5)
  - ARTHRITIS [None]
  - CONDITION AGGRAVATED [None]
  - HIP ARTHROPLASTY [None]
  - PHARMACEUTICAL PRODUCT COMPLAINT [None]
  - RASH [None]
